FAERS Safety Report 19417986 (Version 2)
Quarter: 2021Q3

REPORT INFORMATION
  Report Type: Spontaneous
  Country: US (occurrence: US)
  Receive Date: 20210615
  Receipt Date: 20210726
  Transmission Date: 20211014
  Serious: Yes (Death, Hospitalization)
  Sender: FDA-Public Use
  Company Number: US-INTRA-CELLULAR THERAPIES, INC.-2021ICT00265

PATIENT
  Age: 4 Decade
  Sex: Male

DRUGS (2)
  1. UNSPECIFIED MULTIPLE MEDICATIONS [Concomitant]
     Dosage: UNK
  2. CAPLYTA [Suspect]
     Active Substance: LUMATEPERONE
     Indication: SCHIZOPHRENIA
     Dosage: 42 MG, 1X/DAY
     Route: 048
     Dates: start: 2021

REACTIONS (7)
  - Death [Fatal]
  - Cardiac failure congestive [Unknown]
  - Tobacco user [Unknown]
  - Hospitalisation [Recovered/Resolved]
  - Renal disorder [Unknown]
  - Therapeutic product effect incomplete [Recovered/Resolved]
  - Diabetes mellitus [Unknown]

NARRATIVE: CASE EVENT DATE: 2021
